FAERS Safety Report 11057935 (Version 1)
Quarter: 2015Q2

REPORT INFORMATION
  Report Type: Spontaneous
  Country: US (occurrence: None)
  Receive Date: 20150416
  Receipt Date: 20150416
  Transmission Date: 20150821
  Serious: Yes (Other)
  Sender: FDA-Public Use
  Company Number: US-KEDRION-2015029

PATIENT
  Age: 10 Year
  Sex: Male

DRUGS (1)
  1. ANTI-D IMMUNOGLOBULIN [Suspect]
     Active Substance: IMMUNE GLOBULIN, ANTI-HUMAN
     Route: 064
     Dates: start: 1998

REACTIONS (3)
  - Maternal drugs affecting foetus [None]
  - Ankylosing spondylitis [None]
  - Crohn^s disease [None]

NARRATIVE: CASE EVENT DATE: 2009
